FAERS Safety Report 5977851-5 (Version None)
Quarter: 2008Q4

REPORT INFORMATION
  Report Type: 
  Country: None (occurrence: None)
  Receive Date: 20081203
  Receipt Date: 20081124
  Transmission Date: 20090506
  Serious: Yes (Hospitalization)
  Sender: FDA-Public Use
  Company Number: CA-SANOFI-SYNTHELABO-F01200801761

PATIENT
  Sex: Male

DRUGS (7)
  1. ZOFRAN [Concomitant]
     Dosage: UNK
  2. PROCHLORPERAZINE [Concomitant]
     Dosage: UNK
  3. MULTI-VITAMIN [Concomitant]
     Dosage: UNK
  4. BEVACIZUMAB [Suspect]
     Dosage: 245 MG
     Route: 042
     Dates: start: 20081007
  5. LEUCOVORIN CALCIUM [Suspect]
     Dosage: UNK
     Route: 042
  6. FLUOROURACIL [Suspect]
     Dosage: UNK
     Route: 042
  7. OXALIPLATIN [Suspect]
     Indication: COLORECTAL CANCER METASTATIC
     Dosage: UNK
     Route: 041

REACTIONS (1)
  - DELIRIUM FEBRILE [None]
